FAERS Safety Report 9423457 (Version 1)
Quarter: 2013Q3

REPORT INFORMATION
  Report Type: Spontaneous
  Country: US (occurrence: US)
  Receive Date: 20130726
  Receipt Date: 20130726
  Transmission Date: 20140515
  Serious: No
  Sender: FDA-Public Use
  Company Number: US-UPSHER-SMITH LABORATORIES, INC.-13002419

PATIENT
  Age: 71 Year
  Sex: Male

DRUGS (19)
  1. KLOR-CON M [Suspect]
     Indication: BLOOD POTASSIUM DECREASED
     Dosage: 20 MEQ, BID
     Route: 048
     Dates: start: 2008, end: 20130712
  2. ALBUTEROL                          /00139501/ [Concomitant]
     Dosage: UNK
  3. PROZAC                             /00724401/ [Concomitant]
     Dosage: UNK
  4. DICYCLOMINE                        /00068601/ [Concomitant]
     Dosage: UNK
  5. ATORVASTATIN [Concomitant]
     Dosage: UNK
  6. LISINOPRIL [Concomitant]
     Dosage: UNK
  7. LOPID [Concomitant]
     Dosage: UNK
  8. FAMOTIDINE [Concomitant]
     Dosage: UNK
  9. FUROSEMIDE [Concomitant]
     Dosage: UNK
  10. ISOSORBIDE [Concomitant]
     Dosage: UNK
  11. PROCARDIA [Concomitant]
     Dosage: UNK
  12. PLAVIX                             /01220701/ [Concomitant]
     Dosage: UNK
  13. ATENOLOL [Concomitant]
     Dosage: UNK
  14. SINGULAIR                          /01362601/ [Concomitant]
     Dosage: UNK
  15. XANAX [Concomitant]
     Dosage: UNK
  16. ZETIA [Concomitant]
     Dosage: UNK
  17. DONEPEZIL [Concomitant]
     Dosage: UNK
  18. TRIHEXYPHENIDYL [Concomitant]
     Dosage: UNK
  19. HYDROCODONE BITARTRATE AND ACETAMINOPHEN [Concomitant]
     Dosage: UNK

REACTIONS (4)
  - Choking [Recovered/Resolved]
  - Loss of consciousness [Recovered/Resolved]
  - Non-cardiac chest pain [Recovered/Resolved]
  - Cough [Recovered/Resolved]
